FAERS Safety Report 22774891 (Version 5)
Quarter: 2024Q2

REPORT INFORMATION
  Report Type: Spontaneous
  Country: US (occurrence: US)
  Receive Date: 20230802
  Receipt Date: 20240611
  Transmission Date: 20240715
  Serious: Yes (Other)
  Sender: FDA-Public Use
  Company Number: US-BEH-2023161621

PATIENT
  Age: 22 Year
  Sex: Male

DRUGS (14)
  1. IDELVION [Suspect]
     Active Substance: COAGULATION FACTOR IX RECOMBINANT HUMAN
     Indication: Factor IX deficiency
     Dosage: 1400 INTERNATIONAL UNIT, EVERY 14 DAYS
     Route: 042
     Dates: start: 201903
  2. IDELVION [Suspect]
     Active Substance: COAGULATION FACTOR IX RECOMBINANT HUMAN
     Indication: Factor IX deficiency
     Dosage: 1400 INTERNATIONAL UNIT, EVERY 14 DAYS
     Route: 042
     Dates: start: 201903
  3. IDELVION [Suspect]
     Active Substance: COAGULATION FACTOR IX RECOMBINANT HUMAN
     Indication: Prophylaxis
     Dosage: 1400 INTERNATIONAL UNIT, EVERY 14 DAYS
     Route: 042
     Dates: start: 202212
  4. IDELVION [Suspect]
     Active Substance: COAGULATION FACTOR IX RECOMBINANT HUMAN
     Indication: Prophylaxis
     Dosage: 1400 INTERNATIONAL UNIT, EVERY 14 DAYS
     Route: 042
     Dates: start: 202212
  5. IDELVION [Suspect]
     Active Substance: COAGULATION FACTOR IX RECOMBINANT HUMAN
     Dosage: 1 DOSAGE FORM
     Route: 042
     Dates: start: 20240209
  6. IDELVION [Suspect]
     Active Substance: COAGULATION FACTOR IX RECOMBINANT HUMAN
     Dosage: 1 DOSAGE FORM
     Route: 042
     Dates: start: 20240209
  7. IDELVION [Suspect]
     Active Substance: COAGULATION FACTOR IX RECOMBINANT HUMAN
     Indication: Factor IX deficiency
     Dosage: 7000 INTERNATIONAL UNIT, EVERY 14 DAYS
     Route: 042
     Dates: start: 201903
  8. IDELVION [Suspect]
     Active Substance: COAGULATION FACTOR IX RECOMBINANT HUMAN
     Indication: Factor IX deficiency
     Dosage: 7000 INTERNATIONAL UNIT, EVERY 14 DAYS
     Route: 042
     Dates: start: 201903
  9. IDELVION [Suspect]
     Active Substance: COAGULATION FACTOR IX RECOMBINANT HUMAN
     Indication: Prophylaxis
     Dosage: 8400 INTERNATIONAL UNIT, EVERY 14 DAYS
     Route: 042
     Dates: start: 201903
  10. IDELVION [Suspect]
     Active Substance: COAGULATION FACTOR IX RECOMBINANT HUMAN
     Indication: Prophylaxis
     Dosage: 8400 INTERNATIONAL UNIT, EVERY 14 DAYS
     Route: 042
     Dates: start: 201903
  11. IDELVION [Suspect]
     Active Substance: COAGULATION FACTOR IX RECOMBINANT HUMAN
     Dosage: 7000 INTERNATIONAL UNIT, EVERY 14 DAYS
     Route: 042
     Dates: start: 202212
  12. IDELVION [Suspect]
     Active Substance: COAGULATION FACTOR IX RECOMBINANT HUMAN
     Dosage: 7000 INTERNATIONAL UNIT, EVERY 14 DAYS
     Route: 042
     Dates: start: 202212
  13. IDELVION [Suspect]
     Active Substance: COAGULATION FACTOR IX RECOMBINANT HUMAN
     Dosage: 1 DOSAGE FORM
     Route: 042
     Dates: start: 20240209
  14. IDELVION [Suspect]
     Active Substance: COAGULATION FACTOR IX RECOMBINANT HUMAN
     Dosage: 1 DOSAGE FORM
     Route: 042
     Dates: start: 20240209

REACTIONS (5)
  - Haemarthrosis [Recovered/Resolved]
  - Haemarthrosis [Unknown]
  - Haemorrhage [Unknown]
  - Haemorrhage [Recovered/Resolved]
  - Haemorrhage [Not Recovered/Not Resolved]

NARRATIVE: CASE EVENT DATE: 20230706
